FAERS Safety Report 4304024-4 (Version None)
Quarter: 2004Q1

REPORT INFORMATION
  Report Type: 
  Country: None (occurrence: None)
  Receive Date: 20040223
  Receipt Date: 20031117
  Transmission Date: 20041129
  Serious: No
  Sender: FDA-Public Use
  Company Number: PHEH2003US09507

PATIENT
  Age: 31 Year
  Sex: Female
  Weight: 79.8 kg

DRUGS (2)
  1. ZELNORM [Suspect]
     Indication: IRRITABLE BOWEL SYNDROME
     Dosage: 6 MG, BID, ORAL
     Route: 048
     Dates: start: 20031020, end: 20031024
  2. ALLEGRA [Concomitant]

REACTIONS (2)
  - DYSPNOEA [None]
  - HEADACHE [None]
